FAERS Safety Report 8155545-8 (Version None)
Quarter: 2012Q1

REPORT INFORMATION
  Report Type: 
  Country: None (occurrence: None)
  Receive Date: 20120215
  Receipt Date: 20120208
  Transmission Date: 20120608
  Serious: Yes (Congenital Anomaly, Other)
  Sender: FDA-Public Use
  Company Number: GER/GER/12/0022994

PATIENT

DRUGS (2)
  1. VENLAFAXINE [Suspect]
     Indication: DEPRESSION
     Dosage: 150 MG, 1 IN 1 D, TRANSPLACENTAL
     Route: 064
     Dates: start: 20110501
  2. FOLSAURE RATHIOPHARM (FOLIC ACID) [Concomitant]

REACTIONS (4)
  - TRISOMY 21 [None]
  - MATERNAL DRUGS AFFECTING FOETUS [None]
  - ATRIOVENTRICULAR SEPTAL DEFECT [None]
  - CLEFT LIP AND PALATE [None]
